FAERS Safety Report 9244586 (Version 1)
Quarter: 2013Q2

REPORT INFORMATION
  Report Type: Spontaneous
  Country: IN (occurrence: IN)
  Receive Date: 20130422
  Receipt Date: 20130422
  Transmission Date: 20140414
  Serious: Yes (Other)
  Sender: FDA-Public Use
  Company Number: PHHY2013IN035894

PATIENT
  Age: 49 Year
  Sex: Male
  Weight: 62 kg

DRUGS (1)
  1. ASUNRA [Suspect]
     Indication: MYELOFIBROSIS
     Dosage: 800 MG, PER DAY
     Route: 048

REACTIONS (5)
  - Anal erosion [Not Recovered/Not Resolved]
  - Anal fissure [Unknown]
  - Haemorrhoids [Unknown]
  - Painful defaecation [Unknown]
  - Diarrhoea [Unknown]
